FAERS Safety Report 21049546 (Version 1)
Quarter: 2022Q3

REPORT INFORMATION
  Report Type: Spontaneous
  Country: US (occurrence: None)
  Receive Date: 20220706
  Receipt Date: 20220706
  Transmission Date: 20221027
  Serious: No
  Sender: FDA-Public Use
  Company Number: None

PATIENT
  Sex: 0

DRUGS (1)
  1. BUPIVACAINE\HYDROMORPHONE [Suspect]
     Active Substance: BUPIVACAINE\HYDROMORPHONE
     Route: 041

REACTIONS (2)
  - Product dispensing error [None]
  - Wrong technique in product usage process [None]

NARRATIVE: CASE EVENT DATE: 20220620
